FAERS Safety Report 23794871 (Version 1)
Quarter: 2024Q2

REPORT INFORMATION
  Report Type: Spontaneous
  Country: JP (occurrence: JP)
  Receive Date: 20240429
  Receipt Date: 20240429
  Transmission Date: 20240716
  Serious: No
  Sender: FDA-Public Use
  Company Number: JP-WT-2023-15443

PATIENT

DRUGS (2)
  1. LUNESTA [Suspect]
     Active Substance: ESZOPICLONE
     Route: 048
  2. REFLEX [Concomitant]
     Active Substance: MIRTAZAPINE

REACTIONS (1)
  - Confusional state [Unknown]
